FAERS Safety Report 6930783-8 (Version None)
Quarter: 2010Q3

REPORT INFORMATION
  Report Type: 
  Country: None (occurrence: None)
  Receive Date: 20100817
  Receipt Date: 20100817
  Transmission Date: 20110219
  Serious: Yes (Other)
  Sender: FDA-Public Use
  Company Number: None

PATIENT
  Age: 11 Year
  Sex: Female
  Weight: 53.0709 kg

DRUGS (1)
  1. ADVAIR DISKUS 100/50 [Suspect]
     Indication: ASTHMA
     Dosage: 1 INHALATION 2 TIMES A DAY PO, APPROXIMATELY 2 YRS
     Route: 048

REACTIONS (5)
  - ASTHMA [None]
  - CONVULSION [None]
  - GAIT DISTURBANCE [None]
  - HEMIPARESIS [None]
  - INFECTION [None]
